FAERS Safety Report 14576286 (Version 3)
Quarter: 2020Q3

REPORT INFORMATION
  Report Type: Other
  Country: CN (occurrence: CN)
  Receive Date: 20180227
  Receipt Date: 20200820
  Transmission Date: 20201102
  Serious: Yes (Death, Other)
  Sender: FDA-Public Use
  Company Number: CN-ROCHE-2058536

PATIENT
  Sex: Male
  Weight: 50 kg

DRUGS (1)
  1. AVASTIN [Suspect]
     Active Substance: BEVACIZUMAB
     Indication: RECTAL CANCER
     Route: 041
     Dates: start: 20170331

REACTIONS (7)
  - Leukaemia [Unknown]
  - Nasopharyngitis [Recovered/Resolved]
  - Intestinal fistula [Unknown]
  - Cardiac discomfort [Fatal]
  - Gastrointestinal disorder [Unknown]
  - Headache [Recovered/Resolved]
  - White blood cell count increased [Unknown]
